FAERS Safety Report 12232532 (Version 3)
Quarter: 2016Q2

REPORT INFORMATION
  Report Type: Spontaneous
  Country: JP (occurrence: JP)
  Receive Date: 20160401
  Receipt Date: 20160627
  Transmission Date: 20160815
  Serious: Yes (Disabling, Other)
  Sender: FDA-Public Use
  Company Number: JP-REGENERON PHARMACEUTICALS, INC.-2016-14667

PATIENT

DRUGS (7)
  1. EYLEA [Suspect]
     Active Substance: AFLIBERCEPT
     Dosage: 2 MG, ONCE
     Route: 031
     Dates: start: 20150914, end: 20150914
  2. EYLEA [Suspect]
     Active Substance: AFLIBERCEPT
     Dosage: 2 MG, ONCE
     Route: 031
     Dates: start: 20160127, end: 20160127
  3. EYLEA [Suspect]
     Active Substance: AFLIBERCEPT
     Dosage: 2 MG, ONCE
     Route: 031
     Dates: start: 20150722, end: 20150722
  4. EYLEA [Suspect]
     Active Substance: AFLIBERCEPT
     Indication: AGE-RELATED MACULAR DEGENERATION
     Dosage: 2 MG, ONCE
     Route: 031
     Dates: start: 20150525, end: 20150525
  5. EYLEA [Suspect]
     Active Substance: AFLIBERCEPT
     Dosage: 2 MG, ONCE
     Route: 031
     Dates: start: 20151116, end: 20151116
  6. EYLEA [Suspect]
     Active Substance: AFLIBERCEPT
     Dosage: 2 MG, ONCE
     Route: 031
     Dates: start: 20150622, end: 20150622
  7. EYLEA [Suspect]
     Active Substance: AFLIBERCEPT
     Dosage: 2 MG, ONCE
     Route: 031
     Dates: start: 20160418, end: 20160418

REACTIONS (2)
  - VIth nerve paralysis [Recovered/Resolved with Sequelae]
  - Metamorphopsia [Recovered/Resolved with Sequelae]

NARRATIVE: CASE EVENT DATE: 201510
